FAERS Safety Report 17496181 (Version 1)
Quarter: 2020Q1

REPORT INFORMATION
  Report Type: Spontaneous
  Country: US (occurrence: US)
  Receive Date: 20200224
  Receipt Date: 20200224
  Transmission Date: 20200409
  Serious: Yes (Hospitalization)
  Sender: FDA-Public Use
  Company Number: None

PATIENT
  Age: 53 Year
  Sex: Male

DRUGS (5)
  1. NEO/POLY/ HC [Concomitant]
  2. MAVYRET [Suspect]
     Active Substance: GLECAPREVIR\PIBRENTASVIR
     Indication: CHRONIC HEPATITIS C
     Route: 048
     Dates: start: 20200123
  3. FAMOTIDINE. [Concomitant]
     Active Substance: FAMOTIDINE
  4. AMOXICILLIN. [Concomitant]
     Active Substance: AMOXICILLIN
  5. CELECOXIB. [Concomitant]
     Active Substance: CELECOXIB

REACTIONS (1)
  - Liver disorder [None]

NARRATIVE: CASE EVENT DATE: 20200220
